FAERS Safety Report 4330580-6 (Version None)
Quarter: 2004Q1

REPORT INFORMATION
  Report Type: 
  Country: None (occurrence: None)
  Receive Date: 20040329
  Receipt Date: 20040315
  Transmission Date: 20041129
  Serious: Yes (Life-Threatening, Other)
  Sender: FDA-Public Use
  Company Number: 200411295BCC

PATIENT
  Sex: Male

DRUGS (1)
  1. ASPIRIN [Suspect]
     Indication: PAIN IN JAW
     Dosage: 650 MG, ONCE, ORAL
     Route: 048
     Dates: start: 20000401

REACTIONS (1)
  - UNEVALUABLE EVENT [None]
